FAERS Safety Report 9192716 (Version 1)
Quarter: 2013Q1

REPORT INFORMATION
  Report Type: Spontaneous
  Country: US (occurrence: None)
  Receive Date: 20130325
  Receipt Date: 20130325
  Transmission Date: 20140127
  Serious: No
  Sender: FDA-Public Use
  Company Number: None

PATIENT
  Sex: 0

DRUGS (2)
  1. ROPIVACAINE HYDROCHLORIDE [Suspect]
     Dosage: GIVEN IV ACCIDENTALL
  2. FENTANYL CITRATE [Suspect]
     Dosage: GIVEN IV ACCIDENTALL

REACTIONS (6)
  - Vomiting [None]
  - Eye movement disorder [None]
  - Hypoaesthesia [None]
  - Caesarean section [None]
  - Medication error [None]
  - Wrong technique in drug usage process [None]
